APPROVED DRUG PRODUCT: LEVETIRACETAM
Active Ingredient: LEVETIRACETAM
Strength: 500MG/5ML (100MG/ML)
Dosage Form/Route: INJECTABLE;INTRAVENOUS
Application: A203308 | Product #001 | TE Code: AP
Applicant: MYLAN LABORATORIES LTD
Approved: Sep 16, 2016 | RLD: No | RS: No | Type: RX